FAERS Safety Report 8055917-6 (Version None)
Quarter: 2011Q4

REPORT INFORMATION
  Report Type: 
  Country: None (occurrence: None)
  Receive Date: 20111216
  Receipt Date: 20110322
  Transmission Date: 20120403
  Serious: Yes (Other)
  Sender: FDA-Public Use
  Company Number: 272570USA

PATIENT
  Age: 27 Year
  Sex: Female
  Weight: 81.6475 kg

DRUGS (5)
  1. ESOMEPRAZOLE MAGNESIUM [Concomitant]
  2. PARAGARD T 380A [Suspect]
     Indication: CONTRACEPTION
     Dosage: I.U.
     Route: 015
     Dates: start: 20110308, end: 20110321
  3. METHYLPREDNISOLONE SOIDUM SUCCINATE [Concomitant]
  4. PREDINISONE [Concomitant]
  5. HYDROXYCHLOROQUINE SULFATE [Concomitant]

REACTIONS (3)
  - DEVICE DISLOCATION [None]
  - PELVIC PAIN [None]
  - DEVICE EXPULSION [None]
